FAERS Safety Report 17264513 (Version 2)
Quarter: 2020Q3

REPORT INFORMATION
  Report Type: Spontaneous
  Country: US (occurrence: US)
  Receive Date: 20200113
  Receipt Date: 20200812
  Transmission Date: 20201102
  Serious: Yes (Other)
  Sender: FDA-Public Use
  Company Number: US-CELGENEUS-USA-20200102035

PATIENT

DRUGS (4)
  1. MAGROLIMAB [Suspect]
     Active Substance: MAGROLIMAB
     Indication: MYELODYSPLASTIC SYNDROME
     Dosage: DOSE ESCALATION REGIMEN (1?30 MG/KG)
     Route: 065
  2. AZACITIDINE. [Suspect]
     Active Substance: AZACITIDINE
     Indication: ACUTE MYELOID LEUKAEMIA
  3. AZACITIDINE. [Suspect]
     Active Substance: AZACITIDINE
     Indication: MYELODYSPLASTIC SYNDROME
     Dosage: 75 MILLIGRAM/SQ. METER
     Route: 065
  4. MAGROLIMAB [Suspect]
     Active Substance: MAGROLIMAB
     Indication: ACUTE MYELOID LEUKAEMIA
     Dosage: DOSE ESCALATION REGIMEN (1?30 MG/KG)
     Route: 065

REACTIONS (1)
  - Febrile neutropenia [Unknown]
